FAERS Safety Report 11527280 (Version 1)
Quarter: 2015Q3

REPORT INFORMATION
  Report Type: Report from Study
  Country: KR (occurrence: KR)
  Receive Date: 20150919
  Receipt Date: 20150919
  Transmission Date: 20151125
  Serious: No
  Sender: FDA-Public Use
  Company Number: PHHY2015KR113069

PATIENT
  Age: 26 Year
  Sex: Female

DRUGS (4)
  1. TASIGNA [Suspect]
     Active Substance: NILOTINIB
     Indication: CHRONIC MYELOID LEUKAEMIA
     Dosage: 600 MG, QD
     Route: 048
     Dates: start: 20141017
  2. RINOEBASTEL [Concomitant]
     Indication: PROPHYLAXIS
     Dosage: 1 DF, UNK (2 CAP)
     Route: 048
     Dates: start: 20141016
  3. UCERAX [Concomitant]
     Indication: DERMATITIS CONTACT
     Dosage: 1 DF, UNK (3 TAB)
     Route: 048
     Dates: start: 20141016
  4. UCERAX [Concomitant]
     Indication: PRURITUS

REACTIONS (2)
  - Eczema [Not Recovered/Not Resolved]
  - Dermatitis atopic [Not Recovered/Not Resolved]

NARRATIVE: CASE EVENT DATE: 20141118
